FAERS Safety Report 25322820 (Version 1)
Quarter: 2025Q2

REPORT INFORMATION
  Report Type: Spontaneous
  Country: JP (occurrence: JP)
  Receive Date: 20250516
  Receipt Date: 20250516
  Transmission Date: 20250716
  Serious: Yes (Hospitalization)
  Sender: MERCK SHARP & DOHME LLC
  Company Number: JP-009507513-2285730

PATIENT
  Age: 59 Year
  Sex: Female
  Weight: 44.05 kg

DRUGS (18)
  1. KEYTRUDA [Suspect]
     Active Substance: PEMBROLIZUMAB
     Indication: Uterine cancer
     Route: 041
     Dates: start: 20250305, end: 20250305
  2. MAGNESIUM OXIDE [Concomitant]
     Active Substance: MAGNESIUM OXIDE
     Indication: Constipation
     Dates: start: 20250304
  3. LORAZEPAM [Concomitant]
     Active Substance: LORAZEPAM
     Indication: Nausea
     Dates: start: 20250304
  4. LOPERAMIDE HYDROCHLORIDE [Concomitant]
     Active Substance: LOPERAMIDE HYDROCHLORIDE
     Indication: Diarrhoea
     Dates: start: 20250304
  5. METOCLOPRAMIDE [Concomitant]
     Active Substance: METOCLOPRAMIDE
     Indication: Nausea
     Dates: start: 20250304
  6. Novamin [Concomitant]
     Indication: Nausea
     Dates: start: 20250304
  7. HERBALS [Concomitant]
     Active Substance: HERBALS
     Dates: start: 20250304
  8. MIROGABALIN BESYLATE [Concomitant]
     Active Substance: MIROGABALIN BESYLATE
     Dosage: 5MG; 1.5 TABLETS PER DOSE, TWICE A DAY AFTER BREAKFAST AND DINNER
     Dates: start: 20250304
  9. SYMPROIC [Concomitant]
     Active Substance: NALDEMEDINE TOSYLATE
     Dosage: 0.2MG; 1 TABLET PER DOSE, ONCE A DAY AFTER BREAKFAST
  10. ELIQUIS [Concomitant]
     Active Substance: APIXABAN
     Dosage: 5MG; 1 TABLET PER DOSE, TWICE A DAY AFTER BREAKFAST AND DINNER
     Dates: start: 20250304, end: 20250314
  11. LOXOPROFEN SODIUM [Concomitant]
     Active Substance: LOXOPROFEN SODIUM
     Indication: Pain
     Dates: start: 20250304
  12. REBAMIPIDE [Concomitant]
     Active Substance: REBAMIPIDE
     Indication: Pain
     Dates: start: 20250304
  13. Astat [Concomitant]
     Route: 061
     Dates: start: 20250304
  14. OXYCODONE HYDROCHLORIDE [Concomitant]
     Active Substance: OXYCODONE HYDROCHLORIDE
     Dosage: 5MG; 2 TABLETS PER DOSE, TWICE A DAY AT 8:00 AND 20:00
  15. OXINORM [Concomitant]
     Dates: start: 20250304
  16. ACETAMINOPHEN [Concomitant]
     Active Substance: ACETAMINOPHEN
     Indication: Pain
     Dates: start: 20250308
  17. PACLITAXEL [Suspect]
     Active Substance: PACLITAXEL
     Indication: Uterine cancer
     Dosage: 240MG/DAY
     Dates: start: 20250305
  18. CARBOPLATIN [Suspect]
     Active Substance: CARBOPLATIN
     Indication: Uterine cancer
     Dosage: 375MG/DAY
     Dates: start: 20250305

REACTIONS (2)
  - Immune-mediated renal disorder [Recovered/Resolved]
  - Platelet count decreased [Recovered/Resolved]

NARRATIVE: CASE EVENT DATE: 20250314
